FAERS Safety Report 21205351 (Version 1)
Quarter: 2022Q3

REPORT INFORMATION
  Report Type: Spontaneous
  Country: DE (occurrence: None)
  Receive Date: 20220812
  Receipt Date: 20220812
  Transmission Date: 20221027
  Serious: Yes (Other)
  Sender: FDA-Public Use
  Company Number: DE-ROCHE-3084048

PATIENT
  Sex: Male
  Weight: 84 kg

DRUGS (6)
  1. MABTHERA [Suspect]
     Active Substance: RITUXIMAB
     Indication: Diffuse large B-cell lymphoma
     Dosage: FIRST LINE,R-CHOP, 6 CYCLES
     Route: 065
     Dates: start: 201710, end: 201804
  2. MABTHERA [Suspect]
     Active Substance: RITUXIMAB
     Dosage: 2ND LINE, R-DHAP, 2 CYCLES
     Route: 065
     Dates: start: 201808, end: 201809
  3. CYCLOPHOSPHAMIDE [Suspect]
     Active Substance: CYCLOPHOSPHAMIDE
     Indication: Diffuse large B-cell lymphoma
     Dosage: FIRST LINE,R-CHOP, 6 CYCLES
     Route: 065
     Dates: start: 201710, end: 201804
  4. DOXORUBICIN [Suspect]
     Active Substance: DOXORUBICIN
     Indication: Diffuse large B-cell lymphoma
     Route: 065
     Dates: start: 201710, end: 201804
  5. VINCRISTINE [Suspect]
     Active Substance: VINCRISTINE
     Indication: Diffuse large B-cell lymphoma
     Route: 065
     Dates: start: 201710, end: 201904
  6. PREDNISONE [Suspect]
     Active Substance: PREDNISONE
     Indication: Diffuse large B-cell lymphoma
     Route: 065
     Dates: start: 201710, end: 201804

REACTIONS (2)
  - Acute graft versus host disease [Unknown]
  - Pneumonia [Recovered/Resolved]
